FAERS Safety Report 10960192 (Version 1)
Quarter: 2015Q1

REPORT INFORMATION
  Report Type: Spontaneous
  Country: IT (occurrence: None)
  Receive Date: 20150325
  Receipt Date: 20150325
  Transmission Date: 20150721
  Serious: Yes (Death, Life-Threatening)
  Sender: FDA-Public Use
  Company Number: FK201501297

PATIENT
  Age: 79 Year
  Sex: Male

DRUGS (3)
  1. HEPARIN (MANUFACTURER UNKNOWN) (HEPARIN) (HEPARIN) [Suspect]
     Active Substance: HEPARIN SODIUM
     Indication: PRODUCT USED FOR UNKNOWN INDICATION
  2. SODIUM THIOSULFATE [Concomitant]
     Active Substance: SODIUM THIOSULFATE
  3. CINACALCET [Concomitant]
     Active Substance: CINACALCET

REACTIONS (3)
  - Staphylococcal infection [None]
  - Multi-organ failure [None]
  - Pseudomonas infection [None]
